FAERS Safety Report 24950100 (Version 1)
Quarter: 2025Q1

REPORT INFORMATION
  Report Type: Spontaneous
  Country: CA (occurrence: CA)
  Receive Date: 20250210
  Receipt Date: 20250210
  Transmission Date: 20250409
  Serious: Yes (Death, Hospitalization, Disabling)
  Sender: ROCHE
  Company Number: CA-ROCHE-10000200729

PATIENT
  Age: 44 Year
  Sex: Female
  Weight: 60 kg

DRUGS (1)
  1. RITUXIMAB [Suspect]
     Active Substance: RITUXIMAB
     Indication: Product used for unknown indication
     Route: 065

REACTIONS (41)
  - Abdominal pain upper [Fatal]
  - Bursitis [Fatal]
  - C-reactive protein abnormal [Fatal]
  - Confusional state [Fatal]
  - Diarrhoea [Fatal]
  - Dizziness [Fatal]
  - Dry mouth [Fatal]
  - Dyspepsia [Fatal]
  - Facet joint syndrome [Fatal]
  - Fatigue [Fatal]
  - Gait disturbance [Fatal]
  - Glossodynia [Fatal]
  - Helicobacter infection [Fatal]
  - Infusion related reaction [Fatal]
  - Injury [Fatal]
  - Insomnia [Fatal]
  - Irritable bowel syndrome [Fatal]
  - Joint range of motion decreased [Fatal]
  - Knee arthroplasty [Fatal]
  - Lower limb fracture [Fatal]
  - Malaise [Fatal]
  - Nausea [Fatal]
  - Osteoporosis [Fatal]
  - Pain [Fatal]
  - Pain in extremity [Fatal]
  - Pericarditis [Fatal]
  - Peripheral venous disease [Fatal]
  - Pneumonia [Fatal]
  - Maternal exposure during pregnancy [Fatal]
  - Pulmonary fibrosis [Fatal]
  - Rash [Fatal]
  - Rheumatoid factor positive [Fatal]
  - Road traffic accident [Fatal]
  - Sciatica [Fatal]
  - Sinusitis [Fatal]
  - Swollen joint count increased [Fatal]
  - Synovitis [Fatal]
  - Urticaria [Fatal]
  - Vomiting [Fatal]
  - Walking aid user [Fatal]
  - Wheezing [Fatal]
